FAERS Safety Report 8954925 (Version 3)
Quarter: 2013Q1

REPORT INFORMATION
  Report Type: Spontaneous
  Country: US (occurrence: US)
  Receive Date: 20121207
  Receipt Date: 20130123
  Transmission Date: 20140127
  Serious: Yes (Other)
  Sender: FDA-Public Use
  Company Number: CHPA2012US024932

PATIENT
  Age: 49 Year
  Sex: Female

DRUGS (1)
  1. VOLTAREN GEL [Suspect]
     Indication: LIGAMENT RUPTURE
     Dosage: JUST A LITTLE BIT, UNK
     Route: 061
     Dates: start: 2010

REACTIONS (8)
  - Atrioventricular block [Recovered/Resolved]
  - Ligament rupture [Recovered/Resolved]
  - Neck pain [Recovered/Resolved]
  - Oropharyngeal pain [Recovered/Resolved]
  - Back pain [Recovered/Resolved]
  - Mobility decreased [Recovered/Resolved]
  - Off label use [Unknown]
  - Underdose [Unknown]
